FAERS Safety Report 11218800 (Version 1)
Quarter: 2015Q2

REPORT INFORMATION
  Report Type: Spontaneous
  Country: US (occurrence: None)
  Receive Date: 20150623
  Receipt Date: 20150623
  Transmission Date: 20150821
  Serious: Yes (Disabling, Other)
  Sender: FDA-Public Use
  Company Number: None

PATIENT
  Age: 88 Year
  Sex: Male
  Weight: 88.45 kg

DRUGS (7)
  1. XARELTO [Suspect]
     Active Substance: RIVAROXABAN
     Indication: PROPHYLAXIS
     Dosage: 30 TABLETS
     Route: 048
     Dates: start: 20150430, end: 20150613
  2. XARELTO [Suspect]
     Active Substance: RIVAROXABAN
     Indication: ATRIAL FIBRILLATION
     Dosage: 30 TABLETS
     Route: 048
     Dates: start: 20150430, end: 20150613
  3. AMIODARONE [Concomitant]
     Active Substance: AMIODARONE
  4. ZOCOR [Concomitant]
     Active Substance: SIMVASTATIN
  5. XARELTO [Suspect]
     Active Substance: RIVAROXABAN
     Indication: THROMBOSIS PROPHYLAXIS
     Dosage: 30 TABLETS
     Route: 048
     Dates: start: 20150430, end: 20150613
  6. ASPRIN [Concomitant]
     Active Substance: ASPIRIN
  7. HYDROCHLOROTHIAZIDE. [Concomitant]
     Active Substance: HYDROCHLOROTHIAZIDE

REACTIONS (5)
  - Economic problem [None]
  - Urine flow decreased [None]
  - Renal haemorrhage [None]
  - Pain [None]
  - Renal vascular thrombosis [None]

NARRATIVE: CASE EVENT DATE: 20150606
